FAERS Safety Report 9271255 (Version 1)
Quarter: 2013Q2

REPORT INFORMATION
  Report Type: Spontaneous
  Country: GB (occurrence: GB)
  Receive Date: 20130506
  Receipt Date: 20130506
  Transmission Date: 20140414
  Serious: Yes (Disabling)
  Sender: FDA-Public Use
  Company Number: GB-AMGEN-GBRSP2013030357

PATIENT
  Sex: Female
  Weight: 72 kg

DRUGS (3)
  1. DENOSUMAB [Suspect]
     Indication: OSTEOPOROSIS
     Dosage: 60 MG, UNK
     Route: 058
     Dates: start: 201203, end: 201203
  2. CALCIUM + VITAMIN D                /01483701/ [Concomitant]
     Dosage: UNK
  3. PRADAXA [Concomitant]
     Indication: ATRIAL FIBRILLATION
     Dosage: 1 DF, QD

REACTIONS (3)
  - Gait disturbance [Recovering/Resolving]
  - Cystitis [Recovered/Resolved]
  - Arthralgia [Recovering/Resolving]
